FAERS Safety Report 12566671 (Version 4)
Quarter: 2016Q4

REPORT INFORMATION
  Report Type: Spontaneous
  Country: JP (occurrence: JP)
  Receive Date: 20160718
  Receipt Date: 20161208
  Transmission Date: 20170207
  Serious: Yes (Other)
  Sender: FDA-Public Use
  Company Number: JP-PFIZER INC-2016332576

PATIENT
  Age: 46 Year
  Sex: Female
  Weight: 51 kg

DRUGS (7)
  1. AMLODIPINE BESILATE [Suspect]
     Active Substance: AMLODIPINE BESYLATE
     Indication: BLOOD PRESSURE INCREASED
     Dosage: 5 MG, DAILY
     Dates: start: 20121105
  2. AMLODIPINE BESILATE [Interacting]
     Active Substance: AMLODIPINE BESYLATE
     Dosage: 2.5 MG, DAILY
     Dates: start: 20130207, end: 20130704
  3. AMLODIPINE BESILATE [Interacting]
     Active Substance: AMLODIPINE BESYLATE
     Dosage: 5 MG, UNK
     Dates: start: 20121213
  4. AMLODIPINE BESILATE [Interacting]
     Active Substance: AMLODIPINE BESYLATE
     Indication: HYPERTENSION
     Dosage: 7.5 MG, DAILY
     Dates: start: 20121109, end: 20121206
  5. PAZOPANIB [Interacting]
     Active Substance: PAZOPANIB
     Dosage: 400 MG, DAILY
  6. PAZOPANIB [Interacting]
     Active Substance: PAZOPANIB
     Indication: LEIOMYOSARCOMA RECURRENT
     Dosage: 800 MG, DAILY
     Dates: start: 20121102, end: 20121206
  7. PAZOPANIB [Interacting]
     Active Substance: PAZOPANIB
     Dosage: 600 MG, UNK
     Dates: start: 20121213, end: 20130718

REACTIONS (3)
  - Drug interaction [Unknown]
  - Platelet count decreased [Recovered/Resolved]
  - Neutrophil count decreased [Unknown]

NARRATIVE: CASE EVENT DATE: 20121115
